FAERS Safety Report 22296418 (Version 1)
Quarter: 2023Q2

REPORT INFORMATION
  Report Type: Report from Study
  Country: US (occurrence: US)
  Receive Date: 20230508
  Receipt Date: 20230508
  Transmission Date: 20230721
  Serious: Yes (Other)
  Sender: FDA-Public Use
  Company Number: US-APIL-2313401US

PATIENT
  Sex: Female

DRUGS (1)
  1. CYCLOSPORINE [Suspect]
     Active Substance: CYCLOSPORINE
     Indication: Dry eye
     Dosage: UNK, BID
     Dates: start: 20220101

REACTIONS (3)
  - Suspected transmission of an infectious agent via product [Unknown]
  - Eye infection [Unknown]
  - Suspected product quality issue [Unknown]

NARRATIVE: CASE EVENT DATE: 20230320
